FAERS Safety Report 15150972 (Version 1)
Quarter: 2018Q3

REPORT INFORMATION
  Report Type: Spontaneous
  Country: US (occurrence: US)
  Receive Date: 20180716
  Receipt Date: 20180716
  Transmission Date: 20181010
  Serious: No
  Sender: FDA-Public Use
  Company Number: US-SA-2018SA187922

PATIENT
  Age: 44 Year
  Sex: Female

DRUGS (1)
  1. LUMIZYME [Suspect]
     Active Substance: ALGLUCOSIDASE ALFA
     Dosage: 2000 MG, QOW
     Route: 041
     Dates: start: 20180116

REACTIONS (6)
  - Muscle spasms [Unknown]
  - Fear of falling [Unknown]
  - Fatigue [Unknown]
  - Dyspnoea [Unknown]
  - Muscular weakness [Unknown]
  - Gait disturbance [Unknown]
